FAERS Safety Report 25062196 (Version 1)
Quarter: 2025Q1

REPORT INFORMATION
  Report Type: Spontaneous
  Country: CA (occurrence: CA)
  Receive Date: 20250311
  Receipt Date: 20250311
  Transmission Date: 20250409
  Serious: Yes (Hospitalization)
  Sender: ROCHE
  Company Number: CA-002147023-NVSC2025CA037558

PATIENT
  Age: 75 Year
  Sex: Female

DRUGS (2)
  1. OMALIZUMAB [Suspect]
     Active Substance: OMALIZUMAB
     Indication: Asthma
     Dosage: 300 MG, (Q4W)
     Route: 058
  2. OMALIZUMAB [Suspect]
     Active Substance: OMALIZUMAB
     Dosage: 300 MG, (Q4W)
     Route: 058

REACTIONS (5)
  - Blood magnesium decreased [Unknown]
  - Cerebrovascular accident [Unknown]
  - Haemoglobin abnormal [Unknown]
  - Muscular weakness [Unknown]
  - Obstructive airways disorder [Unknown]
